FAERS Safety Report 11843235 (Version 2)
Quarter: 2015Q4

REPORT INFORMATION
  Report Type: Report from Study
  Country: US (occurrence: US)
  Receive Date: 20151216
  Receipt Date: 20151223
  Transmission Date: 20160305
  Serious: Yes (Hospitalization, Other)
  Sender: FDA-Public Use
  Company Number: US-ROCHE-1676989

PATIENT
  Age: 71 Year
  Sex: Female
  Weight: 99.88 kg

DRUGS (31)
  1. ACTEMRA [Suspect]
     Active Substance: TOCILIZUMAB
     Route: 042
     Dates: start: 201203, end: 201506
  2. PREDNISONE. [Concomitant]
     Active Substance: PREDNISONE
     Indication: RHEUMATOID ARTHRITIS
     Route: 048
     Dates: start: 20151110
  3. PREDNISONE. [Concomitant]
     Active Substance: PREDNISONE
     Route: 048
     Dates: start: 201505
  4. NUVIGIL [Concomitant]
     Active Substance: ARMODAFINIL
     Indication: NARCOLEPSY
     Route: 048
     Dates: start: 201501
  5. PRAMIPEXOLE. [Concomitant]
     Active Substance: PRAMIPEXOLE
     Indication: RESTLESS LEGS SYNDROME
     Route: 048
     Dates: start: 2008
  6. OMEPRAZOLE. [Concomitant]
     Active Substance: OMEPRAZOLE
     Indication: DYSPEPSIA
     Route: 048
     Dates: start: 201411
  7. PREDNISONE. [Concomitant]
     Active Substance: PREDNISONE
     Indication: MUSCULOSKELETAL PAIN
     Route: 030
     Dates: start: 201509
  8. PREDNISONE. [Concomitant]
     Active Substance: PREDNISONE
     Indication: PAIN IN EXTREMITY
  9. VICTOZA [Concomitant]
     Active Substance: LIRAGLUTIDE
     Indication: HYPERTENSION
     Dosage: 18MG AT BEDTIME, ^ A SHOT^
     Route: 058
  10. SALSALATE. [Concomitant]
     Active Substance: SALSALATE
     Indication: RHEUMATOID ARTHRITIS
     Route: 048
  11. NITROGLYCERIN. [Concomitant]
     Active Substance: NITROGLYCERIN
     Dosage: TAKE 1 PILL WAIT 5 MINUTES THEN TAKE ANOTHER WAIT
     Route: 065
  12. SALSALATE. [Concomitant]
     Active Substance: SALSALATE
     Route: 048
     Dates: start: 2012
  13. MYRBETRIQ [Concomitant]
     Active Substance: MIRABEGRON
     Route: 048
     Dates: start: 201410
  14. ASPIRIN. [Concomitant]
     Active Substance: ASPIRIN
     Route: 048
  15. VITAMIN B12 [Concomitant]
     Active Substance: CYANOCOBALAMIN
     Route: 048
     Dates: start: 2008
  16. NITROGLYCERIN. [Concomitant]
     Active Substance: NITROGLYCERIN
     Indication: CHEST PAIN
     Dosage: ^TOOK 3 TABLETS.^
     Route: 060
     Dates: start: 201510
  17. PREDNISONE. [Concomitant]
     Active Substance: PREDNISONE
     Indication: SWELLING
     Route: 048
     Dates: start: 2014
  18. LOSARTAN. [Concomitant]
     Active Substance: LOSARTAN
     Indication: HYPERTENSION
     Dosage: 100 MG EVERYDAY
     Route: 048
  19. LOSARTAN. [Concomitant]
     Active Substance: LOSARTAN
     Route: 048
  20. BUSPAR [Concomitant]
     Active Substance: BUSPIRONE HYDROCHLORIDE
     Dosage: 15MG, 2 TIMES A DAY, 1 TIME IN THE AM
     Route: 048
  21. MYRBETRIQ [Concomitant]
     Active Substance: MIRABEGRON
     Indication: BLADDER DISORDER
     Dosage: IN EVENING
     Route: 048
  22. GABAPENTIN. [Suspect]
     Active Substance: GABAPENTIN
     Indication: PRODUCT USED FOR UNKNOWN INDICATION
     Route: 048
  23. JARDIANCE [Concomitant]
     Active Substance: EMPAGLIFLOZIN
     Route: 048
  24. VICTOZA [Concomitant]
     Active Substance: LIRAGLUTIDE
     Indication: DIABETES MELLITUS
     Route: 058
  25. PRISTIQ EXTENDED RELEASE [Concomitant]
     Active Substance: DESVENLAFAXINE SUCCINATE
     Indication: BIPOLAR DISORDER
     Dosage: 50MG EVERY DAY
     Route: 048
     Dates: start: 201411
  26. BUSPAR [Concomitant]
     Active Substance: BUSPIRONE HYDROCHLORIDE
     Dosage: 22 MG IN AM AND 15 MG PM
     Route: 048
     Dates: start: 1990
  27. RITUXAN [Suspect]
     Active Substance: RITUXIMAB
     Indication: RHEUMATOID ARTHRITIS
     Route: 042
     Dates: start: 20150707, end: 20150723
  28. ACTEMRA [Suspect]
     Active Substance: TOCILIZUMAB
     Indication: RHEUMATOID ARTHRITIS
     Route: 042
     Dates: start: 20110614
  29. CORTISONE [Concomitant]
     Active Substance: CORTISONE\HYDROCORTISONE
     Indication: RHEUMATOID ARTHRITIS
     Route: 030
     Dates: start: 201501
  30. PREDNISONE. [Concomitant]
     Active Substance: PREDNISONE
     Route: 048
     Dates: start: 20151110
  31. CRESTOR [Concomitant]
     Active Substance: ROSUVASTATIN CALCIUM
     Route: 048
     Dates: start: 2008

REACTIONS (26)
  - Rheumatoid arthritis [Unknown]
  - Abdominal discomfort [Unknown]
  - Bladder disorder [Unknown]
  - Staphylococcal infection [Recovered/Resolved]
  - Ear swelling [Unknown]
  - Cardiac disorder [Recovered/Resolved]
  - Narcolepsy [Not Recovered/Not Resolved]
  - Dyspnoea [Recovered/Resolved]
  - Cardiac disorder [Recovering/Resolving]
  - Ear pain [Unknown]
  - Vital functions abnormal [Unknown]
  - Chest pain [Recovered/Resolved]
  - Weight decreased [Unknown]
  - Fibromyalgia [Unknown]
  - Hypoaesthesia [Unknown]
  - Diverticulitis [Unknown]
  - Cellulitis [Recovered/Resolved]
  - Hypertension [Unknown]
  - Pain of skin [Not Recovered/Not Resolved]
  - Back pain [Unknown]
  - Inflammation [Unknown]
  - Heart rate decreased [Recovering/Resolving]
  - Drug ineffective [Unknown]
  - Arthritis [Unknown]
  - Hearing impaired [Unknown]
  - Carbuncle [Recovered/Resolved]

NARRATIVE: CASE EVENT DATE: 2014
